FAERS Safety Report 6503420-4 (Version None)
Quarter: 2009Q4

REPORT INFORMATION
  Report Type: 
  Country: None (occurrence: None)
  Receive Date: 20091201
  Receipt Date: 20090902
  Transmission Date: 20100525
  Serious: Yes (Other)
  Sender: FDA-Public Use
  Company Number: 2009-199669-NL

PATIENT
  Age: 43 Year
  Sex: Female
  Weight: 99.7913 kg

DRUGS (4)
  1. NUVARING [Suspect]
     Indication: CONTRACEPTION
     Dosage: 1 DF;
     Dates: start: 20050831, end: 20070701
  2. NUVARING [Suspect]
     Indication: MENSTRUATION IRREGULAR
     Dosage: 1 DF;
     Dates: start: 20050831, end: 20070701
  3. LEXAPRO [Concomitant]
  4. PROPRANOLOL [Concomitant]

REACTIONS (4)
  - OEDEMA [None]
  - PALPITATIONS [None]
  - PULMONARY EMBOLISM [None]
  - THROMBOPHLEBITIS SUPERFICIAL [None]
